FAERS Safety Report 4945380-3 (Version None)
Quarter: 2006Q1

REPORT INFORMATION
  Report Type: 
  Country: None (occurrence: None)
  Receive Date: 20060315
  Receipt Date: 20060315
  Transmission Date: 20060701
  Serious: No
  Sender: FDA-Public Use
  Company Number: None

PATIENT
  Age: 61 Year
  Sex: Male
  Weight: 75 kg

DRUGS (2)
  1. CEFAZOLIN [Suspect]
     Indication: PREOPERATIVE CARE
     Dosage: 1 GRAM PRE OP IV DRIP
     Route: 041
     Dates: start: 20060302, end: 20060302
  2. CEFAZOLIN [Suspect]
     Indication: SURGERY
     Dosage: 1 GRAM PRE OP IV DRIP
     Route: 041
     Dates: start: 20060302, end: 20060302

REACTIONS (6)
  - CHILLS [None]
  - MALAISE [None]
  - NAUSEA [None]
  - PHARMACEUTICAL PRODUCT COMPLAINT [None]
  - POOR QUALITY DRUG ADMINISTERED [None]
  - PYREXIA [None]
